FAERS Safety Report 17150364 (Version 3)
Quarter: 2021Q2

REPORT INFORMATION
  Report Type: Report from Study
  Country: JP (occurrence: JP)
  Receive Date: 20191213
  Receipt Date: 20210623
  Transmission Date: 20210716
  Serious: Yes (Life-Threatening, Hospitalization, Other)
  Sender: FDA-Public Use
  Company Number: JP-VIIV HEALTHCARE LIMITED-JP2018JPN226114

PATIENT
  Age: 5 Decade
  Sex: Male

DRUGS (57)
  1. LAMISIL [Concomitant]
     Active Substance: TERBINAFINE HYDROCHLORIDE
     Dosage: UNK
  2. DAIPHEN COMBINATION TABLETS [Concomitant]
     Indication: PROPHYLAXIS
     Dosage: UNK
     Dates: start: 20170715, end: 20171114
  3. FAMOTIDINE. [Concomitant]
     Active Substance: FAMOTIDINE
     Indication: PROPHYLAXIS
     Dosage: UNK
     Dates: start: 20171024, end: 20171122
  4. GRANISETRON HYDROCHLORIDE INTRAVENOUS INFUSION [Concomitant]
     Dosage: UNK
     Dates: start: 20170912, end: 20170916
  5. FUROSEMIDE. [Concomitant]
     Active Substance: FUROSEMIDE
     Indication: PROPHYLAXIS
     Dosage: UNK
     Dates: start: 20170717, end: 20170717
  6. DIAMOX SEQUELS [Concomitant]
     Active Substance: ACETAZOLAMIDE
     Dosage: UNK
     Dates: start: 20170822, end: 20170828
  7. UROMITEXAN [Concomitant]
     Active Substance: MESNA
     Indication: PROPHYLAXIS
     Dosage: UNK
     Dates: start: 20170731, end: 20170804
  8. UROMITEXAN [Concomitant]
     Active Substance: MESNA
     Dosage: UNK
     Dates: start: 20170912, end: 20170916
  9. MEYLON INJECTION [Concomitant]
     Dosage: UNK
     Dates: start: 20170912, end: 20170915
  10. GRANISETRON HYDROCHLORIDE INTRAVENOUS INFUSION [Concomitant]
     Dosage: UNK
     Dates: start: 20171115, end: 20171119
  11. FILGRASTIM BS INJECTION [Concomitant]
     Indication: PROPHYLAXIS
     Dosage: UNK
     Dates: start: 20170720, end: 20170720
  12. FILGRASTIM BS INJECTION [Concomitant]
     Dosage: UNK
     Dates: start: 20170806, end: 20170815
  13. FILGRASTIM BS INJECTION [Concomitant]
     Dosage: UNK
     Dates: start: 20171121, end: 20171130
  14. LEUCOVORIN. [Concomitant]
     Active Substance: LEUCOVORIN
     Dosage: UNK
     Dates: start: 20171005, end: 20171009
  15. LEUCOVORIN. [Concomitant]
     Active Substance: LEUCOVORIN
     Dosage: UNK
     Dates: start: 20171026, end: 20171030
  16. UROMITEXAN [Concomitant]
     Active Substance: MESNA
     Dosage: UNK
     Dates: start: 20171024, end: 20171028
  17. MEYLON INJECTION [Concomitant]
     Dosage: UNK
     Dates: start: 20171024, end: 20171031
  18. FUROSEMIDE. [Concomitant]
     Active Substance: FUROSEMIDE
     Dosage: UNK
     Dates: start: 20170719, end: 20170720
  19. FILGRASTIM BS INJECTION [Concomitant]
     Dosage: UNK
     Dates: start: 20170722, end: 20170723
  20. DIAMOX SEQUELS [Concomitant]
     Active Substance: ACETAZOLAMIDE
     Dosage: UNK
     Dates: start: 20170913, end: 20170915
  21. DIAMOX SEQUELS [Concomitant]
     Active Substance: ACETAZOLAMIDE
     Dosage: UNK
     Dates: start: 20171024, end: 20171029
  22. LANSOPRAZOLE?OD TABLETS [Concomitant]
     Indication: PROPHYLAXIS
     Dosage: UNK
     Dates: start: 20170719, end: 201801
  23. DIAMOX SEQUELS [Concomitant]
     Active Substance: ACETAZOLAMIDE
     Indication: PROPHYLAXIS
     Dosage: UNK
     Dates: start: 20170824, end: 20171029
  24. HEMOCURON [Concomitant]
     Active Substance: TRIBENOSIDE
     Dosage: UNK
     Dates: start: 20170525, end: 20170726
  25. BIOFERMIN R (JAPAN) [Concomitant]
     Indication: PROPHYLAXIS
     Dosage: UNK
     Dates: start: 20170906, end: 20171218
  26. ABACAVIRSULPHATE+DOLUTEGRAVIR+LAMIVUDINE [Suspect]
     Active Substance: ABACAVIR SULFATE\DOLUTEGRAVIR SODIUM\LAMIVUDINE
     Indication: HIV INFECTION
     Dosage: 1 DF, 1D
     Route: 048
     Dates: start: 20160609
  27. FEBURIC TABLETS [Concomitant]
     Active Substance: FEBUXOSTAT
     Indication: PROPHYLAXIS
     Dosage: UNK
     Dates: start: 20170718, end: 20170802
  28. GRANISETRON HYDROCHLORIDE INTRAVENOUS INFUSION [Concomitant]
     Dosage: UNK
     Dates: start: 20170724, end: 20170804
  29. GRANISETRON HYDROCHLORIDE INTRAVENOUS INFUSION [Concomitant]
     Dosage: UNK
     Dates: start: 20171024, end: 20171028
  30. FILGRASTIM BS INJECTION [Concomitant]
     Dosage: UNK
     Dates: start: 20171010, end: 20171020
  31. LEVOFLOXACIN. [Concomitant]
     Active Substance: LEVOFLOXACIN
     Indication: PROPHYLAXIS
     Dosage: UNK
     Dates: start: 20170823, end: 20171017
  32. ZITHROMAC [Concomitant]
     Active Substance: AZITHROMYCIN DIHYDRATE
     Indication: PROPHYLAXIS
     Dosage: UNK, WE
     Dates: start: 20170830, end: 201801
  33. GRANISETRON HYDROCHLORIDE INTRAVENOUS INFUSION [Concomitant]
     Indication: PROPHYLAXIS
     Dosage: UNK
     Dates: start: 20170718, end: 20170718
  34. GRANISETRON HYDROCHLORIDE INTRAVENOUS INFUSION [Concomitant]
     Dosage: UNK
     Dates: start: 20171003, end: 20171007
  35. DIAMOX SEQUELS [Concomitant]
     Active Substance: ACETAZOLAMIDE
     Dosage: UNK
     Dates: start: 20171004, end: 20171010
  36. MAGNESIUM OXIDE TABLET [Concomitant]
     Active Substance: MAGNESIUM OXIDE
     Indication: PROPHYLAXIS
     Dosage: UNK
     Dates: start: 20170804, end: 20171004
  37. LEUCOVORIN. [Concomitant]
     Active Substance: LEUCOVORIN
     Indication: PROPHYLAXIS
     Dosage: UNK
     Dates: start: 20170802, end: 20170804
  38. LEUCOVORIN. [Concomitant]
     Active Substance: LEUCOVORIN
     Dosage: UNK
     Dates: start: 20170824, end: 20170828
  39. BENAMBAX [Concomitant]
     Active Substance: PENTAMIDINE
     Indication: PROPHYLAXIS
     Dosage: UNK
     Dates: start: 20171113, end: 20171113
  40. MEYLON INJECTION [Concomitant]
     Dosage: UNK
     Dates: start: 20170822, end: 20170828
  41. CLENAFIN [Concomitant]
     Active Substance: EFINACONAZOLE
     Dosage: UNK
  42. MINOMYCIN [Concomitant]
     Active Substance: MINOCYCLINE HYDROCHLORIDE
     Dosage: UNK
     Dates: end: 20170720
  43. ITRIZOLE ORAL SOLUTION [Concomitant]
     Indication: PROPHYLAXIS
     Dosage: UNK
     Dates: start: 20170715, end: 201801
  44. MEYLON INJECTION [Concomitant]
     Indication: PROPHYLAXIS
     Dosage: UNK
     Dates: start: 20170731, end: 20170804
  45. OMEPRAZOLE INJECTION [Concomitant]
     Indication: PROPHYLAXIS
     Dosage: UNK
     Dates: start: 20170715, end: 20170718
  46. FUROSEMIDE. [Concomitant]
     Active Substance: FUROSEMIDE
     Dosage: UNK
     Dates: start: 20170917, end: 20170917
  47. FILGRASTIM BS INJECTION [Concomitant]
     Dosage: UNK
     Dates: start: 20171205, end: 20171206
  48. SENNOSIDE TABLETS [Concomitant]
     Active Substance: SENNOSIDES
     Indication: PROPHYLAXIS
     Dosage: UNK
     Dates: start: 20170804, end: 20171030
  49. MEYLON INJECTION [Concomitant]
     Dosage: UNK
     Dates: start: 20171003, end: 20171007
  50. VICCLOX TABLETS [Concomitant]
     Indication: PROPHYLAXIS
     Dosage: UNK
     Dates: start: 20170715, end: 201802
  51. GRANISETRON HYDROCHLORIDE INTRAVENOUS INFUSION [Concomitant]
     Dosage: UNK
     Dates: start: 20170822, end: 20170826
  52. FUROSEMIDE. [Concomitant]
     Active Substance: FUROSEMIDE
     Dosage: UNK
     Dates: start: 20171116, end: 20171122
  53. FILGRASTIM BS INJECTION [Concomitant]
     Dosage: UNK
     Dates: start: 20170729, end: 20170730
  54. FILGRASTIM BS INJECTION [Concomitant]
     Dosage: UNK
     Dates: start: 20170829, end: 20170906
  55. FILGRASTIM BS INJECTION [Concomitant]
     Dosage: UNK
     Dates: start: 20170918, end: 20170928
  56. DIAMOX SEQUELS [Concomitant]
     Active Substance: ACETAZOLAMIDE
     Indication: PROPHYLAXIS
     Dosage: UNK
     Dates: start: 20170801, end: 20170804
  57. LEUCOVORIN. [Concomitant]
     Active Substance: LEUCOVORIN
     Dosage: UNK
     Dates: start: 20170914, end: 20170916

REACTIONS (4)
  - Renal impairment [Recovered/Resolved with Sequelae]
  - Burkitt^s lymphoma [Recovering/Resolving]
  - Goitre [Recovered/Resolved]
  - Nausea [Recovered/Resolved]

NARRATIVE: CASE EVENT DATE: 20170622
